FAERS Safety Report 8056451-X (Version None)
Quarter: 2012Q1

REPORT INFORMATION
  Report Type: 
  Country: None (occurrence: None)
  Receive Date: 20120119
  Receipt Date: 20120113
  Transmission Date: 20120608
  Serious: Yes (Hospitalization, Other)
  Sender: FDA-Public Use
  Company Number: US-MERCK-1108USA02953

PATIENT
  Age: 63 Year
  Sex: Female
  Weight: 56 kg

DRUGS (6)
  1. FOSAMAX [Suspect]
     Route: 048
     Dates: start: 19950101, end: 20030101
  2. CALCIUM (UNSPECIFIED) [Concomitant]
     Route: 065
     Dates: start: 19940101
  3. VITAMINS (UNSPECIFIED) [Concomitant]
     Route: 065
     Dates: start: 19940101
  4. VITAMIN D (UNSPECIFIED) [Concomitant]
     Route: 065
     Dates: start: 19940101
  5. FOSAMAX [Suspect]
     Route: 065
     Dates: start: 20090101, end: 20090801
  6. FOSAMAX [Suspect]
     Indication: OSTEOPOROSIS
     Route: 048
     Dates: start: 19950101, end: 20080201

REACTIONS (85)
  - JOINT SWELLING [None]
  - COUGH [None]
  - FEELING HOT [None]
  - INFECTION [None]
  - ASTHENIA [None]
  - URINARY TRACT INFECTION [None]
  - ARTHRALGIA [None]
  - PAIN IN JAW [None]
  - EAR DISORDER [None]
  - ATAXIA [None]
  - BONE PAIN [None]
  - FEMUR FRACTURE [None]
  - DIARRHOEA [None]
  - DEPRESSION [None]
  - PAIN IN EXTREMITY [None]
  - LUMBAR SPINAL STENOSIS [None]
  - MUSCULAR WEAKNESS [None]
  - SJOGREN'S SYNDROME [None]
  - ATROPHIC VULVOVAGINITIS [None]
  - SYNOVITIS [None]
  - PUS IN STOOL [None]
  - INTERVERTEBRAL DISC PROTRUSION [None]
  - INCREASED TENDENCY TO BRUISE [None]
  - BLOOD CHOLESTEROL INCREASED [None]
  - THROMBOSIS [None]
  - HERPES ZOSTER [None]
  - GRANULOMA [None]
  - FATIGUE [None]
  - LICHEN PLANUS [None]
  - SKIN ULCER [None]
  - JAUNDICE [None]
  - CATARACT OPERATION [None]
  - ANTIBODY TEST POSITIVE [None]
  - DENTAL CARE [None]
  - CONTUSION [None]
  - OSTEOARTHRITIS [None]
  - LYMPHADENOPATHY [None]
  - RHINITIS ALLERGIC [None]
  - RASH [None]
  - DYSPHONIA [None]
  - DRUG INTOLERANCE [None]
  - BLOOD PRESSURE INCREASED [None]
  - BREAST DISORDER [None]
  - NEOPLASM MALIGNANT [None]
  - FIBULA FRACTURE [None]
  - RADIUS FRACTURE [None]
  - ANAEMIA [None]
  - JOINT DISLOCATION [None]
  - COLONIC POLYP [None]
  - GASTROOESOPHAGEAL REFLUX DISEASE [None]
  - FOOT FRACTURE [None]
  - STRESS [None]
  - RHINORRHOEA [None]
  - RECTAL FISSURE [None]
  - DRY MOUTH [None]
  - DYSPHAGIA [None]
  - GASTRIC ULCER [None]
  - OEDEMA PERIPHERAL [None]
  - IRRITABLE BOWEL SYNDROME [None]
  - HYPERLIPIDAEMIA [None]
  - DRUG INEFFECTIVE [None]
  - SYNCOPE [None]
  - TORTICOLLIS [None]
  - SLEEP APNOEA SYNDROME [None]
  - RIB FRACTURE [None]
  - VITAMIN B12 DEFICIENCY [None]
  - BUNION [None]
  - EAR DISCOMFORT [None]
  - ANTINUCLEAR ANTIBODY POSITIVE [None]
  - GASTRITIS [None]
  - TREMOR [None]
  - KYPHOSIS [None]
  - POST GASTRIC SURGERY SYNDROME [None]
  - LUNG NEOPLASM [None]
  - ANXIETY [None]
  - DERMATITIS CONTACT [None]
  - FALL [None]
  - ORAL LICHEN PLANUS [None]
  - NOCTURIA [None]
  - SLEEP DISORDER [None]
  - VULVOVAGINAL CANDIDIASIS [None]
  - URINARY INCONTINENCE [None]
  - MYALGIA [None]
  - EYE DISORDER [None]
  - DIZZINESS [None]
